FAERS Safety Report 15729451 (Version 1)
Quarter: 2018Q4

REPORT INFORMATION
  Report Type: Spontaneous
  Country: DK (occurrence: DK)
  Receive Date: 20181217
  Receipt Date: 20181217
  Transmission Date: 20190205
  Serious: Yes (Hospitalization)
  Sender: FDA-Public Use
  Company Number: DK-PFIZER INC-2018511789

PATIENT
  Age: 70 Year
  Sex: Female
  Weight: 69 kg

DRUGS (4)
  1. AMLODIPIN ACTAVIS [AMLODIPINE BESILATE] [Concomitant]
     Indication: HYPERTENSION
     Dosage: 5 MG, 1X/DAY
     Route: 048
     Dates: start: 20150101
  2. ATORVASTATIN TEVA [Concomitant]
     Active Substance: ATORVASTATIN
     Indication: HYPERCHOLESTEROLAEMIA
     Dosage: 40 MG, 1X/DAY
     Route: 048
     Dates: start: 20080201
  3. XARELTO [Concomitant]
     Active Substance: RIVAROXABAN
     Indication: THROMBOSIS PROPHYLAXIS
     Dosage: 20 MG, 1X/DAY
     Route: 048
     Dates: start: 20140201
  4. ZOLEDRONSYRE PFIZER [Suspect]
     Active Substance: ZOLEDRONIC ACID
     Indication: OSTEOPOROSIS PROPHYLAXIS
     Dosage: 5 ML, 1X/DAY
     Route: 042
     Dates: start: 20180601, end: 20180601

REACTIONS (7)
  - Pyrexia [Recovered/Resolved]
  - Bone pain [Recovered/Resolved]
  - Myalgia [Recovered/Resolved]
  - Arthralgia [Recovered/Resolved]
  - Atrial fibrillation [Recovered/Resolved]
  - Fatigue [Recovered/Resolved]
  - Joint swelling [Recovered/Resolved]

NARRATIVE: CASE EVENT DATE: 20180601
